FAERS Safety Report 7444655-6 (Version None)
Quarter: 2011Q2

REPORT INFORMATION
  Report Type: 
  Country: None (occurrence: None)
  Receive Date: 20110429
  Receipt Date: 20110427
  Transmission Date: 20111010
  Serious: Yes (Disabling, Other)
  Sender: FDA-Public Use
  Company Number: GB-PFIZER INC-2011091385

PATIENT
  Age: 51 Year
  Sex: Male

DRUGS (3)
  1. DICLOFENAC [Concomitant]
     Indication: MUSCULOSKELETAL PAIN
     Dosage: 1 DF, 2X/DAY
     Route: 048
     Dates: start: 20110228
  2. FLUOXETINE [Concomitant]
     Indication: DEPRESSION
     Dosage: 20 MG, 1X/DAY
     Dates: start: 20100129
  3. CHAMPIX [Suspect]
     Indication: SMOKING CESSATION THERAPY
     Dosage: 1 DF, 2X/DAY
     Route: 048
     Dates: start: 20110216

REACTIONS (4)
  - BLOOD PRESSURE INCREASED [None]
  - WITHDRAWAL SYNDROME [None]
  - MYALGIA [None]
  - SURGERY [None]
